FAERS Safety Report 6346290-X (Version None)
Quarter: 2009Q3

REPORT INFORMATION
  Report Type: 
  Country: None (occurrence: None)
  Receive Date: 20090909
  Receipt Date: 20090827
  Transmission Date: 20100115
  Serious: Yes (Other)
  Sender: FDA-Public Use
  Company Number: PHHY2009SE36404

PATIENT
  Age: 23 Year
  Sex: Female

DRUGS (2)
  1. TRILEPTAL [Suspect]
     Indication: EPILEPSY
  2. ANTIEPILEPTICS [Concomitant]
     Indication: EPILEPSY

REACTIONS (3)
  - DECREASED APPETITE [None]
  - GASTRIC HYPOMOTILITY [None]
  - INTESTINAL ULCER [None]
